FAERS Safety Report 13766924 (Version 1)
Quarter: 2017Q3

REPORT INFORMATION
  Report Type: Spontaneous
  Country: GB (occurrence: GB)
  Receive Date: 20170719
  Receipt Date: 20170719
  Transmission Date: 20171127
  Serious: Yes (Other)
  Sender: FDA-Public Use
  Company Number: GB-DEXPHARM-20171011

PATIENT
  Age: 87 Year
  Sex: Female
  Weight: 60 kg

DRUGS (8)
  1. CEFALEXIN [Concomitant]
     Active Substance: CEPHALEXIN
  2. RAMIPRIL. [Concomitant]
     Active Substance: RAMIPRIL
  3. FELODIPINE. [Concomitant]
     Active Substance: FELODIPINE
  4. APIXABAN [Concomitant]
     Active Substance: APIXABAN
  5. OMEPRAZOLE. [Suspect]
     Active Substance: OMEPRAZOLE
     Dosage: DAILY DOSE: 20 MG MILLGRAM(S) EVERY DAYS
     Route: 048
     Dates: end: 20170626
  6. ATORVASTATIN [Concomitant]
     Active Substance: ATORVASTATIN
  7. ADCAL-D3 [Concomitant]
     Active Substance: CALCIUM CARBONATE\CHOLECALCIFEROL
  8. SOTALOL. [Concomitant]
     Active Substance: SOTALOL

REACTIONS (1)
  - Hypomagnesaemia [Not Recovered/Not Resolved]

NARRATIVE: CASE EVENT DATE: 20170623
